FAERS Safety Report 9006512 (Version 2)
Quarter: 2014Q2

REPORT INFORMATION
  Report Type: Report from Study
  Country: US (occurrence: US)
  Receive Date: 20130110
  Receipt Date: 20140417
  Transmission Date: 20141212
  Serious: Yes (Other)
  Sender: FDA-Public Use
  Company Number: US-ELI_LILLY_AND_COMPANY-US201301001299

PATIENT
  Age: 73 Year
  Sex: Female

DRUGS (8)
  1. TERIPARATIDE [Suspect]
     Indication: OSTEOPOROSIS
     Dosage: UNK, QD
     Route: 065
     Dates: start: 20121102
  2. TERIPARATIDE [Suspect]
     Dosage: UNK, QD
     Route: 065
  3. BONIVA [Concomitant]
  4. WARFARIN [Concomitant]
  5. GABAPENTIN [Concomitant]
  6. SIMVASTATIN [Concomitant]
  7. PRIMIDONE [Concomitant]
  8. POTASSIUM [Concomitant]

REACTIONS (10)
  - Cardiac failure [Unknown]
  - Blood pressure increased [Unknown]
  - Tachycardia [Unknown]
  - Femur fracture [Unknown]
  - Nausea [Unknown]
  - Dizziness [Unknown]
  - Muscular weakness [Unknown]
  - Malaise [Unknown]
  - Diarrhoea [Unknown]
  - Faeces discoloured [Recovered/Resolved]
